FAERS Safety Report 6255124-3 (Version None)
Quarter: 2009Q3

REPORT INFORMATION
  Report Type: 
  Country: None (occurrence: None)
  Receive Date: 20090702
  Receipt Date: 20090618
  Transmission Date: 20100115
  Serious: Yes (Other)
  Sender: FDA-Public Use
  Company Number: PHHY2009JP24701

PATIENT
  Age: 39 Year
  Sex: Male

DRUGS (2)
  1. FASTIC [Suspect]
     Indication: TYPE 2 DIABETES MELLITUS
     Dosage: 270 MG/DAY
     Route: 048
     Dates: start: 20090220, end: 20090319
  2. MELBIN [Suspect]
     Dosage: 500 MG, UNK
     Route: 048
     Dates: start: 20090220, end: 20090319

REACTIONS (1)
  - LIVER DISORDER [None]
